FAERS Safety Report 5161485-9 (Version None)
Quarter: 2006Q4

REPORT INFORMATION
  Report Type: 
  Country: None (occurrence: None)
  Receive Date: 20061130
  Receipt Date: 20060821
  Transmission Date: 20070319
  Serious: No
  Sender: FDA-Public Use
  Company Number: US-GLAXOSMITHKLINE-A0617471A

PATIENT
  Age: 32 Year
  Sex: Female

DRUGS (3)
  1. WELLBUTRIN XL [Suspect]
     Indication: DEPRESSION
     Route: 048
     Dates: start: 20060811
  2. EFFEXOR XR [Suspect]
     Dosage: 75MG PER DAY
     Dates: end: 20060817
  3. NO CONCURRENT MEDICATION [Concomitant]

REACTIONS (5)
  - CRYING [None]
  - DIZZINESS [None]
  - HYPERACUSIS [None]
  - HYPERHIDROSIS [None]
  - NAUSEA [None]
